FAERS Safety Report 4589216-1 (Version None)
Quarter: 2005Q1

REPORT INFORMATION
  Report Type: 
  Country: None (occurrence: None)
  Receive Date: 20050214
  Receipt Date: 20050214
  Transmission Date: 20050727
  Serious: No
  Sender: FDA-Public Use
  Company Number: None

PATIENT
  Age: 60 Year
  Sex: Male
  Weight: 77.1115 kg

DRUGS (2)
  1. ACTIQ [Suspect]
     Indication: NEUROPATHY
     Dosage: 400 MCG 12 -3X
     Dates: start: 20040404, end: 20041001
  2. DURAGESIC-100 [Concomitant]

REACTIONS (4)
  - AGEUSIA [None]
  - DENTAL CARIES [None]
  - DRY MOUTH [None]
  - GLOSSODYNIA [None]
